FAERS Safety Report 4845321-3 (Version None)
Quarter: 2005Q4

REPORT INFORMATION
  Report Type: 
  Country: None (occurrence: None)
  Receive Date: 20051205
  Receipt Date: 20051123
  Transmission Date: 20060501
  Serious: Yes (Other)
  Sender: FDA-Public Use
  Company Number: GB-GLAXOSMITHKLINE-B0401623A

PATIENT
  Sex: Female

DRUGS (3)
  1. SEROXAT [Suspect]
     Indication: DEPRESSION
     Route: 048
     Dates: start: 19990712
  2. PAROXETINE HYDROCHLORIDE [Suspect]
     Route: 048
  3. HERBAL MEDICATION [Concomitant]
     Route: 065
     Dates: start: 20001101

REACTIONS (10)
  - AFFECTIVE DISORDER [None]
  - AGGRESSION [None]
  - COMPLETED SUICIDE [None]
  - DIZZINESS [None]
  - DRY MOUTH [None]
  - HEAD DISCOMFORT [None]
  - ILL-DEFINED DISORDER [None]
  - MOOD SWINGS [None]
  - NAUSEA [None]
  - SENSORY DISTURBANCE [None]
